FAERS Safety Report 21605360 (Version 12)
Quarter: 2023Q2

REPORT INFORMATION
  Report Type: Other
  Country: VN (occurrence: None)
  Receive Date: 20221116
  Receipt Date: 20230608
  Transmission Date: 20230721
  Serious: Yes (Hospitalization)
  Sender: FDA-Public Use
  Company Number: VN-ROCHE-3218316

PATIENT
  Age: 37 Year
  Sex: Female
  Weight: 54 kg

DRUGS (4)
  1. ALECTINIB [Suspect]
     Active Substance: ALECTINIB
     Indication: Non-small cell lung cancer metastatic
     Dosage: DATE OF MOST RECENT DOSE OF STUDY DRUG PRIOR TO AE ON 11/NOV/2022 AT 600 MG
     Route: 048
     Dates: start: 20221028
  2. ZOMETA [Concomitant]
     Active Substance: ZOLEDRONIC ACID
     Route: 042
     Dates: start: 20221226, end: 20221226
  3. PANAX PSEUDOGINSENG [Concomitant]
     Route: 048
     Dates: start: 202210, end: 20221111
  4. ALECTINIB [Concomitant]
     Active Substance: ALECTINIB
     Dates: start: 20221013

REACTIONS (1)
  - Hepatic enzyme increased [Recovered/Resolved]

NARRATIVE: CASE EVENT DATE: 20221111
